FAERS Safety Report 21030590 (Version 1)
Quarter: 2022Q3

REPORT INFORMATION
  Report Type: Spontaneous
  Country: US (occurrence: None)
  Receive Date: 20220701
  Receipt Date: 20220701
  Transmission Date: 20221027
  Serious: No
  Sender: FDA-Public Use
  Company Number: US-ROCHE-3023904

PATIENT
  Sex: Female

DRUGS (16)
  1. ACTEMRA [Suspect]
     Active Substance: TOCILIZUMAB
     Indication: Body mass index
     Route: 058
     Dates: start: 20211201
  2. ACTEMRA [Suspect]
     Active Substance: TOCILIZUMAB
  3. BENADRYL ALLERGY [Concomitant]
     Active Substance: DIPHENHYDRAMINE HYDROCHLORIDE
  4. BUPROPION HYDROCHLORIDE [Concomitant]
     Active Substance: BUPROPION HYDROCHLORIDE
  5. CLOBETASOL [Concomitant]
     Active Substance: CLOBETASOL
  6. LORATADINE [Concomitant]
     Active Substance: LORATADINE
  7. LYRICA [Concomitant]
     Active Substance: PREGABALIN
  8. OTEZLA [Concomitant]
     Active Substance: APREMILAST
  9. PANTOPRAZOLE [Concomitant]
     Active Substance: PANTOPRAZOLE
  10. SINGULAIR [Concomitant]
     Active Substance: MONTELUKAST SODIUM
  11. AMITRIPTYLINE [Concomitant]
     Active Substance: AMITRIPTYLINE
  12. FOLIC ACID [Concomitant]
     Active Substance: FOLIC ACID
  13. LISINOPRIL [Concomitant]
     Active Substance: LISINOPRIL
  14. TOVIAZ [Concomitant]
     Active Substance: FESOTERODINE FUMARATE
  15. VITAMIN B12 [Concomitant]
     Active Substance: CYANOCOBALAMIN
  16. VITAMIN D [Concomitant]
     Active Substance: VITAMIN D NOS

REACTIONS (1)
  - COVID-19 [Recovered/Resolved]
